FAERS Safety Report 10052653 (Version 1)
Quarter: 2014Q2

REPORT INFORMATION
  Report Type: Spontaneous
  Country: US (occurrence: US)
  Receive Date: 20140402
  Receipt Date: 20140402
  Transmission Date: 20141212
  Serious: Yes (Other)
  Sender: FDA-Public Use
  Company Number: US-ABBVIE-14P-163-1216758-00

PATIENT
  Age: 65 Year
  Sex: Female
  Weight: 85 kg

DRUGS (16)
  1. DIVALPROEX SODIUM [Suspect]
     Indication: HEADACHE
  2. DIVALPROEX SODIUM [Interacting]
     Indication: PROPHYLAXIS
  3. WARFARIN [Interacting]
     Indication: ATRIAL FIBRILLATION
     Dosage: TOTAL WEEKLY DOSE 22.5 MG
  4. WARFARIN [Interacting]
     Indication: CEREBROVASCULAR ACCIDENT
     Dosage: TOTAL WEEKLY DOSE 20 MG
  5. WARFARIN [Interacting]
     Dosage: TOTAL WEEKLY DOSE 22.5 MG
  6. AMITRIPTYLINE [Concomitant]
     Indication: PRODUCT USED FOR UNKNOWN INDICATION
  7. IRBESARTAN [Concomitant]
     Indication: PRODUCT USED FOR UNKNOWN INDICATION
  8. BOTULINUM TOXIN TYPE A [Concomitant]
     Indication: PRODUCT USED FOR UNKNOWN INDICATION
     Route: 030
  9. CENTRUM [Concomitant]
     Indication: PRODUCT USED FOR UNKNOWN INDICATION
     Dosage: DAILY
  10. BISACODYL [Concomitant]
     Indication: PRODUCT USED FOR UNKNOWN INDICATION
  11. DOCUSATE SODIUM [Concomitant]
     Indication: PRODUCT USED FOR UNKNOWN INDICATION
  12. DIGOXIN [Concomitant]
     Indication: PRODUCT USED FOR UNKNOWN INDICATION
  13. METFORMIN [Concomitant]
     Indication: PRODUCT USED FOR UNKNOWN INDICATION
  14. CALCIUM CARBONATE AND VITAMIN D [Concomitant]
     Indication: PRODUCT USED FOR UNKNOWN INDICATION
     Dosage: 500 MG/400 IU
  15. PAROXETINE [Concomitant]
     Indication: PRODUCT USED FOR UNKNOWN INDICATION
  16. SIMVASTATIN [Concomitant]
     Indication: PRODUCT USED FOR UNKNOWN INDICATION

REACTIONS (3)
  - International normalised ratio increased [Recovered/Resolved]
  - Drug interaction [Recovered/Resolved]
  - Fatigue [Unknown]
